FAERS Safety Report 7068701-7 (Version None)
Quarter: 2010Q4

REPORT INFORMATION
  Report Type: 
  Country: None (occurrence: None)
  Receive Date: 20101028
  Receipt Date: 20101022
  Transmission Date: 20110411
  Serious: Yes (Hospitalization)
  Sender: FDA-Public Use
  Company Number: FR-PFIZER INC-2010134466

PATIENT
  Age: 63 Year
  Sex: Female

DRUGS (5)
  1. CELEBREX [Suspect]
     Indication: ARTHRITIS
     Dosage: UNK
     Route: 048
     Dates: end: 20100730
  2. CELEBREX [Suspect]
     Indication: RHEUMATOID ARTHRITIS
  3. NOVATREX ^LEDERLE^ [Suspect]
     Indication: RHEUMATOID ARTHRITIS
     Dosage: 15 MG, WEEKLY
     Route: 048
     Dates: start: 20020101, end: 20100730
  4. IXPRIM [Suspect]
     Indication: RHEUMATOID ARTHRITIS
     Dosage: UNK
     Route: 048
     Dates: end: 20100730
  5. TOCILIZUMAB [Concomitant]
     Indication: RHEUMATOID ARTHRITIS
     Dosage: 1 DF, MONTHLY
     Route: 042
     Dates: start: 20100602, end: 20100630

REACTIONS (1)
  - INTERSTITIAL LUNG DISEASE [None]
